FAERS Safety Report 13621874 (Version 1)
Quarter: 2017Q2

REPORT INFORMATION
  Report Type: Spontaneous
  Country: US (occurrence: US)
  Receive Date: 20170607
  Receipt Date: 20170607
  Transmission Date: 20170830
  Serious: No
  Sender: FDA-Public Use
  Company Number: US-ROCHE-1765178

PATIENT
  Sex: Female

DRUGS (2)
  1. XELODA [Suspect]
     Active Substance: CAPECITABINE
     Dosage: 1000MG IN AM, 500MG IN PM?TWICE DAILY FOR 7 DAYS, OFF 7 DAYS + REPEAT?FOR ONCOLOGY
     Route: 048
     Dates: start: 20140702
  2. XELODA [Suspect]
     Active Substance: CAPECITABINE
     Indication: PRODUCT USED FOR UNKNOWN INDICATION
     Dosage: 2 TAB IN THE MORNING AND 1 TAB IN EVENING.?2 TIMES DAILY FOR 7 DAYS ON AND 7 DAYS OFF, REPEAT?FOR ON
     Route: 048
     Dates: start: 201407

REACTIONS (7)
  - Headache [Not Recovered/Not Resolved]
  - Influenza [Unknown]
  - Dyspnoea [Not Recovered/Not Resolved]
  - Malaise [Unknown]
  - Neuropathy peripheral [Not Recovered/Not Resolved]
  - Viral upper respiratory tract infection [Unknown]
  - Upper respiratory tract infection [Not Recovered/Not Resolved]
